FAERS Safety Report 4711970-6 (Version None)
Quarter: 2005Q2

REPORT INFORMATION
  Report Type: 
  Country: None (occurrence: None)
  Receive Date: 20050629
  Receipt Date: 20050311
  Transmission Date: 20051028
  Serious: No
  Sender: FDA-Public Use
  Company Number: 05P-163-0293685-00

PATIENT
  Age: 53 Year
  Sex: Female
  Weight: 56.6996 kg

DRUGS (11)
  1. HUMIRA [Suspect]
     Indication: RHEUMATOID ARTHRITIS
     Dosage: 40 MG, 1 IN 2 WK, SUBCUTANEOUS
     Route: 058
     Dates: start: 20030301
  2. SULFASALAZINE [Concomitant]
  3. CYCLOBENZAPRINE HYDROCHLORIDE [Concomitant]
  4. AMITRIPTYLINE HCL [Concomitant]
  5. FLUOXETINE HCL [Concomitant]
  6. LOVASTATIN [Concomitant]
  7. FLURAZEPAM HCL [Concomitant]
  8. LORAZEPAM [Concomitant]
  9. PREDNISONE [Concomitant]
  10. CALCIUM GLUCONATE [Concomitant]
  11. FOLIC ACID [Concomitant]

REACTIONS (7)
  - CHEILITIS [None]
  - DECREASED APPETITE [None]
  - EPISTAXIS [None]
  - LIP BLISTER [None]
  - SWELLING FACE [None]
  - TONGUE DISORDER [None]
  - WEIGHT DECREASED [None]
